FAERS Safety Report 7296347-4 (Version None)
Quarter: 2011Q1

REPORT INFORMATION
  Report Type: 
  Country: None (occurrence: None)
  Receive Date: 20110216
  Receipt Date: 20110207
  Transmission Date: 20110831
  Serious: No
  Sender: FDA-Public Use
  Company Number: GB-ASTRAZENECA-2011SE07773

PATIENT
  Age: 35 Year

DRUGS (1)
  1. SEROQUEL [Suspect]
     Route: 048
     Dates: start: 20101201

REACTIONS (1)
  - NEUTROPENIA [None]
